FAERS Safety Report 21385513 (Version 3)
Quarter: 2022Q4

REPORT INFORMATION
  Report Type: Spontaneous
  Country: US (occurrence: US)
  Receive Date: 20220928
  Receipt Date: 20221103
  Transmission Date: 20230113
  Serious: No
  Sender: FDA-Public Use
  Company Number: US-ELI_LILLY_AND_COMPANY-US202209010750

PATIENT
  Sex: Female

DRUGS (4)
  1. ADCIRCA [Suspect]
     Active Substance: TADALAFIL
     Indication: Product used for unknown indication
     Dosage: UNK UNK, UNKNOWN
     Route: 065
     Dates: end: 20221003
  2. TYVASO [Suspect]
     Active Substance: TREPROSTINIL
     Indication: Pulmonary arterial hypertension
     Dosage: 7 BREATHS, QID
     Route: 055
     Dates: start: 202104
  3. TYVASO [Suspect]
     Active Substance: TREPROSTINIL
     Dosage: 7 BREATHS, QID
     Route: 055
     Dates: start: 20210707
  4. OPSUMIT [Suspect]
     Active Substance: MACITENTAN
     Indication: Product used for unknown indication
     Dosage: UNK UNK, UNKNOWN
     Route: 065
     Dates: end: 20221003

REACTIONS (3)
  - Respiration abnormal [Unknown]
  - Tinnitus [Unknown]
  - Dizziness [Unknown]
